FAERS Safety Report 17427419 (Version 1)
Quarter: 2020Q1

REPORT INFORMATION
  Report Type: Spontaneous
  Country: IT (occurrence: IT)
  Receive Date: 20200218
  Receipt Date: 20200218
  Transmission Date: 20200409
  Serious: No
  Sender: FDA-Public Use
  Company Number: IT-ALKEM LABORATORIES LIMITED-IT-ALKEM-2019-08885

PATIENT
  Age: 37 Year
  Sex: Male

DRUGS (3)
  1. TETRACYCLINE [Concomitant]
     Active Substance: TETRACYCLINE
     Indication: ENTEROCOCCAL INFECTION
     Dosage: 1 PERCENT EVERY 4HOURS
     Route: 061
  2. TIGECYCLINE. [Suspect]
     Active Substance: TIGECYCLINE
     Indication: ENTEROCOCCAL INFECTION
     Dosage: 50 MILLIGRAM, BID
     Route: 065
  3. LINEZOLID. [Suspect]
     Active Substance: LINEZOLID
     Indication: ENTEROCOCCAL INFECTION
     Dosage: 600 MILLIGRAM, BID
     Route: 065

REACTIONS (1)
  - Off label use [Unknown]
